FAERS Safety Report 12566274 (Version 3)
Quarter: 2016Q4

REPORT INFORMATION
  Report Type: Spontaneous
  Country: US (occurrence: US)
  Receive Date: 20160718
  Receipt Date: 20161026
  Transmission Date: 20170207
  Serious: Yes (Hospitalization)
  Sender: FDA-Public Use
  Company Number: US-UNITED THERAPEUTICS-UNT-2016-009954

PATIENT
  Age: 59 Year
  Sex: Female
  Weight: 44.9 kg

DRUGS (3)
  1. REMODULIN [Suspect]
     Active Substance: TREPROSTINIL
     Indication: PULMONARY HYPERTENSION
     Dosage: 0.095 ?G/KG, CONTINUING
     Route: 058
     Dates: start: 20141112
  2. REMODULIN [Suspect]
     Active Substance: TREPROSTINIL
     Dosage: 0.102 ?G/KG, CONTINUING
     Route: 058
  3. ADCIRCA [Concomitant]
     Active Substance: TADALAFIL
     Indication: PRODUCT USED FOR UNKNOWN INDICATION

REACTIONS (8)
  - Knee arthroplasty [Unknown]
  - Dyspnoea [Unknown]
  - Transfusion [Unknown]
  - Knee operation [Unknown]
  - Arthralgia [Unknown]
  - Joint effusion [Unknown]
  - Infected cyst [Unknown]
  - Post procedural haematoma [Unknown]

NARRATIVE: CASE EVENT DATE: 2016
